FAERS Safety Report 8071561-9 (Version None)
Quarter: 2012Q1

REPORT INFORMATION
  Report Type: 
  Country: None (occurrence: None)
  Receive Date: 20120125
  Receipt Date: 20111228
  Transmission Date: 20120608
  Serious: Yes (Hospitalization)
  Sender: FDA-Public Use
  Company Number: US-JNJFOC-20111204884

PATIENT
  Sex: Female
  Weight: 51.26 kg

DRUGS (7)
  1. SIMPONI [Suspect]
     Indication: RHEUMATOID ARTHRITIS
     Route: 058
     Dates: start: 20110427, end: 20110916
  2. METHOTREXATE [Concomitant]
     Indication: RHEUMATOID ARTHRITIS
     Dates: start: 20110427, end: 20110916
  3. FOLIC ACID [Concomitant]
     Indication: RHEUMATOID ARTHRITIS
     Dates: start: 20110427, end: 20110916
  4. ACTEMRA [Suspect]
     Indication: PRODUCT USED FOR UNKNOWN INDICATION
     Route: 042
  5. ELAVIL [Concomitant]
     Indication: RHEUMATOID ARTHRITIS
     Dates: start: 20110112
  6. ELAVIL [Concomitant]
     Indication: ARTHRALGIA
     Dates: start: 20110112
  7. PREDNISONE TAB [Concomitant]
     Indication: RHEUMATOID ARTHRITIS
     Dates: start: 20110112

REACTIONS (1)
  - PNEUMONIA [None]
